FAERS Safety Report 7711662-5 (Version None)
Quarter: 2011Q3

REPORT INFORMATION
  Report Type: 
  Country: None (occurrence: None)
  Receive Date: 20110826
  Receipt Date: 20110714
  Transmission Date: 20111222
  Serious: No
  Sender: FDA-Public Use
  Company Number: US-BRISTOL-MYERS SQUIBB COMPANY-15902729

PATIENT
  Age: 73 Year
  Sex: Male

DRUGS (4)
  1. PLAVIX [Concomitant]
  2. ZOLOFT [Concomitant]
  3. ASPIRIN [Concomitant]
  4. ONGLYZA [Suspect]

REACTIONS (1)
  - SINUSITIS [None]
